FAERS Safety Report 15555800 (Version 1)
Quarter: 2018Q4

REPORT INFORMATION
  Report Type: Spontaneous
  Country: ES (occurrence: ES)
  Receive Date: 20181026
  Receipt Date: 20181026
  Transmission Date: 20190205
  Serious: Yes (Hospitalization)
  Sender: FDA-Public Use
  Company Number: ES-MYLANLABS-2018M1078285

PATIENT
  Age: 30 Year
  Sex: Female

DRUGS (5)
  1. DOXORUBICIN [Concomitant]
     Active Substance: DOXORUBICIN
     Indication: OSTEOSARCOMA
     Dosage: 75 MG/M2, UNK
     Route: 065
  2. SODIUM BICARBONATE. [Concomitant]
     Active Substance: SODIUM BICARBONATE
     Indication: URINE ALKALINISATION THERAPY
     Route: 048
  3. SODIUM [Concomitant]
     Active Substance: SODIUM
     Indication: URINE ALKALINISATION THERAPY
     Route: 042
  4. METHOTREXATE. [Suspect]
     Active Substance: METHOTREXATE
     Indication: OSTEOSARCOMA
     Dosage: FIRST CYCLE OF HIGH-DOSE METHOTREXATE, 12 G/M2
     Route: 050
  5. CISPLATIN. [Concomitant]
     Active Substance: CISPLATIN
     Indication: OSTEOSARCOMA
     Dosage: 120 MG/M2, UNK
     Route: 065

REACTIONS (3)
  - Hepatotoxicity [Recovered/Resolved]
  - Nephropathy toxic [Recovered/Resolved]
  - Crystalluria [Recovered/Resolved]
